FAERS Safety Report 20633041 (Version 6)
Quarter: 2022Q4

REPORT INFORMATION
  Report Type: Report from Study
  Country: US (occurrence: US)
  Receive Date: 20220324
  Receipt Date: 20221107
  Transmission Date: 20230112
  Serious: Yes (Other)
  Sender: FDA-Public Use
  Company Number: US-ABBVIE-22K-163-4329431-00

PATIENT
  Age: 75 Year
  Sex: Female

DRUGS (3)
  1. HUMIRA [Suspect]
     Active Substance: ADALIMUMAB
     Indication: Rheumatoid arthritis
     Route: 058
  2. HUMIRA [Suspect]
     Active Substance: ADALIMUMAB
     Route: 058
  3. HUMIRA [Suspect]
     Active Substance: ADALIMUMAB
     Route: 058

REACTIONS (15)
  - Peripheral nerve operation [Recovering/Resolving]
  - Intervertebral disc protrusion [Unknown]
  - Spinal operation [Recovering/Resolving]
  - Musculoskeletal pain [Unknown]
  - Sitting disability [Unknown]
  - Inflammation [Not Recovered/Not Resolved]
  - COVID-19 [Unknown]
  - Arthralgia [Unknown]
  - Arthralgia [Unknown]
  - Back pain [Unknown]
  - Pain [Not Recovered/Not Resolved]
  - Impaired healing [Unknown]
  - Spinal osteoarthritis [Unknown]
  - Intervertebral disc compression [Unknown]
  - Illness [Unknown]

NARRATIVE: CASE EVENT DATE: 20210914
